FAERS Safety Report 8422590-4 (Version None)
Quarter: 2012Q2

REPORT INFORMATION
  Report Type: 
  Country: None (occurrence: None)
  Receive Date: 20120608
  Receipt Date: 20120516
  Transmission Date: 20120825
  Serious: Yes (Hospitalization, Other)
  Sender: FDA-Public Use
  Company Number: US-ROCHE-1011563

PATIENT
  Sex: Female

DRUGS (9)
  1. ADVAIR DISKUS 100/50 [Concomitant]
  2. PEGASYS [Suspect]
     Indication: HEPATITIS C
     Route: 058
     Dates: start: 20110829
  3. PROAIR HFA [Concomitant]
  4. ATIVAN [Concomitant]
  5. PROCARDIA XL [Concomitant]
  6. ACCOLATE [Concomitant]
  7. LEXAPRO [Concomitant]
  8. COPEGUS [Suspect]
     Indication: HEPATITIS C
     Dosage: DIVIDED DOSES
     Dates: start: 20110829
  9. BOCEPREVIR [Suspect]
     Indication: HEPATITIS C
     Dosage: 4 TABLETS THRICE IN DAY.
     Dates: start: 20110927

REACTIONS (19)
  - ANAEMIA [None]
  - WHITE BLOOD CELL COUNT DECREASED [None]
  - RED BLOOD CELL COUNT DECREASED [None]
  - DYSPHAGIA [None]
  - PNEUMONIA [None]
  - RASH [None]
  - SINUSITIS [None]
  - MIDDLE EAR EFFUSION [None]
  - TINNITUS [None]
  - SENSORY DISTURBANCE [None]
  - WEIGHT DECREASED [None]
  - STOMATITIS [None]
  - LIP ULCERATION [None]
  - FATIGUE [None]
  - CHAPPED LIPS [None]
  - OROPHARYNGEAL PAIN [None]
  - PANCYTOPENIA [None]
  - PLATELET COUNT DECREASED [None]
  - BACK PAIN [None]
